FAERS Safety Report 8063109-X (Version None)
Quarter: 2012Q1

REPORT INFORMATION
  Report Type: 
  Country: None (occurrence: None)
  Receive Date: 20120123
  Receipt Date: 20120112
  Transmission Date: 20120608
  Serious: Yes (Hospitalization)
  Sender: FDA-Public Use
  Company Number: US-BAYER-2011-101641

PATIENT
  Age: 20 Year
  Sex: Female
  Weight: 58.957 kg

DRUGS (4)
  1. MOTRIN [Concomitant]
     Indication: HEADACHE
     Dosage: UNK
     Dates: start: 20000101
  2. IBUPROFEN (ADVIL) [Concomitant]
     Indication: HEADACHE
     Dosage: UNK
     Dates: start: 20000101
  3. ACETAMINOPHEN [Concomitant]
     Route: 048
  4. YAZ [Suspect]
     Indication: CONTRACEPTION
     Route: 048

REACTIONS (4)
  - PAIN [None]
  - CHOLECYSTITIS CHRONIC [None]
  - PANCREATITIS [None]
  - CHOLELITHIASIS [None]
